FAERS Safety Report 23552159 (Version 4)
Quarter: 2024Q3

REPORT INFORMATION
  Report Type: Spontaneous
  Country: ZA (occurrence: ZA)
  Receive Date: 20240222
  Receipt Date: 20240703
  Transmission Date: 20241017
  Serious: Yes (Death, Life-Threatening, Other)
  Sender: NOVARTIS
  Company Number: ZA-002147023-NVSC2024ZA031804

PATIENT
  Age: 45 Year
  Sex: Male
  Weight: 75 kg

DRUGS (1)
  1. SIMULECT [Suspect]
     Active Substance: BASILIXIMAB
     Indication: Transplant rejection
     Dosage: 20 MG
     Route: 042
     Dates: start: 20240211, end: 20240211

REACTIONS (2)
  - Transplant rejection [Fatal]
  - Drug ineffective [Fatal]

NARRATIVE: CASE EVENT DATE: 20240211
